FAERS Safety Report 5965264-1 (Version None)
Quarter: 2008Q4

REPORT INFORMATION
  Report Type: 
  Country: None (occurrence: None)
  Receive Date: 20081124
  Receipt Date: 20081124
  Transmission Date: 20090506
  Serious: Yes (Other)
  Sender: FDA-Public Use
  Company Number: None

PATIENT
  Weight: 55.3388 kg

DRUGS (1)
  1. SPIRIVA [Suspect]
     Indication: CHRONIC OBSTRUCTIVE PULMONARY DISEASE
     Dosage: 18MCG 1 INHAL
     Route: 055
     Dates: start: 20081115, end: 20081116

REACTIONS (1)
  - PRODUCT QUALITY ISSUE [None]
